FAERS Safety Report 16656351 (Version 1)
Quarter: 2019Q3

REPORT INFORMATION
  Report Type: Spontaneous
  Country: US (occurrence: US)
  Receive Date: 20190617
  Receipt Date: 20190617
  Transmission Date: 20191004
  Serious: No
  Sender: FDA-Public Use
  Company Number: None

PATIENT

DRUGS (2)
  1. PURALUBE [Suspect]
     Active Substance: MINERAL OIL\PETROLATUM
     Dosage: ?          OTHER FREQUENCY:TUBE;?
     Route: 047
  2. ERYTHROMYCIN. [Suspect]
     Active Substance: ERYTHROMYCIN
     Dosage: ?          OTHER FREQUENCY:TUBE;?
     Route: 047

REACTIONS (2)
  - Intercepted product dispensing error [None]
  - Product appearance confusion [None]
